FAERS Safety Report 11371981 (Version 1)
Quarter: 2015Q3

REPORT INFORMATION
  Report Type: Spontaneous
  Country: US (occurrence: US)
  Receive Date: 20150812
  Receipt Date: 20150812
  Transmission Date: 20151125
  Serious: No
  Sender: FDA-Public Use
  Company Number: GXBR2015US001339

PATIENT
  Sex: Female
  Weight: 57.14 kg

DRUGS (1)
  1. NITRO-BID [Suspect]
     Active Substance: NITROGLYCERIN
     Indication: OSTEOPOROSIS
     Dosage: 1 DF, QHS
     Route: 061

REACTIONS (1)
  - Off label use [Not Recovered/Not Resolved]
